FAERS Safety Report 16969490 (Version 1)
Quarter: 2019Q4

REPORT INFORMATION
  Report Type: Spontaneous
  Country: US (occurrence: US)
  Receive Date: 20190911
  Receipt Date: 20190911
  Transmission Date: 20200122
  Serious: Yes (Hospitalization)
  Sender: FDA-Public Use
  Company Number: None

PATIENT
  Sex: Female

DRUGS (12)
  1. BISACODYL. [Concomitant]
     Active Substance: BISACODYL
  2. BUDSONIDE [Concomitant]
  3. CALCIUM CARB [Suspect]
     Active Substance: CALCIUM CARBONATE
  4. CUPOS [Concomitant]
  5. LEVOTHYROXIN [Concomitant]
     Active Substance: LEVOTHYROXINE
  6. VALPROIC [Concomitant]
     Active Substance: VALPROIC ACID
  7. LACTULOSE. [Concomitant]
     Active Substance: LACTULOSE
  8. SILACE [Concomitant]
     Active Substance: DOCUSATE SODIUM
  9. TOBRAMYCIN 300MG/5ML MG [Suspect]
     Active Substance: TOBRAMYCIN
     Indication: CYSTIC FIBROSIS
     Route: 055
     Dates: start: 20190104
  10. CLOBAZAM. [Concomitant]
     Active Substance: CLOBAZAM
  11. RANITIDINE. [Concomitant]
     Active Substance: RANITIDINE
  12. DIURIL [Concomitant]
     Active Substance: CHLOROTHIAZIDE

REACTIONS (1)
  - Seizure [None]
